FAERS Safety Report 23854915 (Version 1)
Quarter: 2024Q2

REPORT INFORMATION
  Report Type: Spontaneous
  Country: US (occurrence: US)
  Receive Date: 20240514
  Receipt Date: 20240514
  Transmission Date: 20240715
  Serious: No
  Sender: FDA-Public Use
  Company Number: US-ANIPHARMA-2024-US-019192

PATIENT
  Sex: Male

DRUGS (14)
  1. CORTICOTROPIN [Suspect]
     Active Substance: CORTICOTROPIN
     Indication: Haematuria
     Dosage: 1 ML TWO TIMES PER WEEK
     Route: 058
  2. SERTRALINE HYDROCHLORIDE [Concomitant]
     Active Substance: SERTRALINE HYDROCHLORIDE
  3. LISINOPRIL [Concomitant]
     Active Substance: LISINOPRIL
  4. OMEPRAZOLE [Concomitant]
     Active Substance: DONEPEZIL HYDROCHLORIDE\OMEPRAZOLE\OMEPRAZOLE MAGNESIUM
  5. OTEZLA [Concomitant]
     Active Substance: APREMILAST
  6. TAMSULOSIN HYDROCHLORIDE [Concomitant]
     Active Substance: TAMSULOSIN HYDROCHLORIDE
  7. ROSUVASTATIN CALCIUM [Concomitant]
     Active Substance: ROSUVASTATIN CALCIUM
  8. RANOLAZINE [Concomitant]
     Active Substance: RANOLAZINE
  9. FAMOTIDINE [Concomitant]
     Active Substance: FAMOTIDINE
  10. VITAMIN D [Concomitant]
     Active Substance: VITAMIN D NOS
  11. DAILY FIBER [Concomitant]
     Active Substance: PSYLLIUM HUSK
  12. VITAMINS [Concomitant]
     Active Substance: VITAMINS
  13. ASPIRIN [Concomitant]
     Active Substance: ASPIRIN
  14. FISH OIL [Concomitant]
     Active Substance: FISH OIL

REACTIONS (2)
  - Headache [Unknown]
  - Product use in unapproved indication [Not Recovered/Not Resolved]
